FAERS Safety Report 12857239 (Version 2)
Quarter: 2016Q4

REPORT INFORMATION
  Report Type: Spontaneous
  Country: CA (occurrence: CA)
  Receive Date: 20161018
  Receipt Date: 20161019
  Transmission Date: 20170207
  Serious: Yes (Other)
  Sender: FDA-Public Use
  Company Number: CA-PFIZER INC-2016106541

PATIENT
  Age: 66 Year
  Sex: Female
  Weight: 66 kg

DRUGS (11)
  1. LYRICA [Suspect]
     Active Substance: PREGABALIN
     Indication: NEUROPATHY PERIPHERAL
     Dosage: 75 MG, DAILY NIGHT
     Route: 048
     Dates: start: 20160215, end: 20160215
  2. LYRICA [Suspect]
     Active Substance: PREGABALIN
     Indication: AUTONOMIC NEUROPATHY
     Dosage: 150 MG, DAILY NIGHT
     Route: 048
     Dates: start: 20160213, end: 20160214
  3. METFORMIN [Concomitant]
     Active Substance: METFORMIN HYDROCHLORIDE
     Indication: DIABETES MELLITUS
     Dosage: 500 MG, 2X/DAY
  4. ASA [Concomitant]
     Active Substance: ASPIRIN
     Indication: PROPHYLAXIS
     Dosage: 81 MG, 1X/DAY AT BEDTIME
  5. RABEPRAZOLE [Concomitant]
     Active Substance: RABEPRAZOLE
     Indication: GASTROOESOPHAGEAL REFLUX DISEASE
     Dosage: 20 MG, UNK
     Dates: start: 2015
  6. LYRICA [Suspect]
     Active Substance: PREGABALIN
     Dosage: ONCE A DAY TO TWICE A DAY
     Route: 048
     Dates: start: 201602
  7. TRAMADOL EXTENDED-RELEASE [Concomitant]
     Indication: BONE PAIN
     Dosage: 200 MG, 1X/DAY
     Route: 048
  8. LYRICA [Suspect]
     Active Substance: PREGABALIN
     Dosage: 75 MG, DAILY AT BEDTIME
     Route: 048
     Dates: start: 20160211, end: 20160221
  9. CONSTELLA [Concomitant]
     Active Substance: LINACLOTIDE
     Indication: FUNCTIONAL GASTROINTESTINAL DISORDER
     Dosage: 290 UG, UNK
     Dates: start: 2015
  10. LYRICA [Suspect]
     Active Substance: PREGABALIN
     Indication: PAIN
     Dosage: 75 MG, DAILY AT BEDTIME NIGHT
     Route: 048
     Dates: start: 20160211, end: 20160212
  11. NITRAZEPAM [Concomitant]
     Active Substance: NITRAZEPAM
     Indication: INSOMNIA
     Dosage: 10 MG, 1X/DAY AT BEDTIME

REACTIONS (9)
  - Headache [Recovered/Resolved]
  - Malaise [Unknown]
  - Fatigue [Unknown]
  - Facial paralysis [Unknown]
  - Stomatitis [Recovered/Resolved]
  - Insomnia [Recovered/Resolved with Sequelae]
  - Myocardial infarction [Recovered/Resolved with Sequelae]
  - Feeling abnormal [Recovered/Resolved]
  - Agitation [Recovered/Resolved with Sequelae]

NARRATIVE: CASE EVENT DATE: 201602
